FAERS Safety Report 4270049-0 (Version None)
Quarter: 2004Q1

REPORT INFORMATION
  Report Type: 
  Country: None (occurrence: None)
  Receive Date: 20040114
  Receipt Date: 20030115
  Transmission Date: 20041129
  Serious: No
  Sender: FDA-Public Use
  Company Number: US-GLAXOSMITHKLINE-A0392602A

PATIENT
  Sex: Female

DRUGS (1)
  1. WELLBUTRIN [Suspect]
     Indication: ILL-DEFINED DISORDER
     Route: 048

REACTIONS (3)
  - DYSPNOEA [None]
  - NONSPECIFIC REACTION [None]
  - PHARYNGOLARYNGEAL PAIN [None]
